FAERS Safety Report 10015014 (Version 2)
Quarter: 2014Q1

REPORT INFORMATION
  Report Type: Spontaneous
  Country: US (occurrence: US)
  Receive Date: 20140317
  Receipt Date: 20140317
  Transmission Date: 20141002
  Serious: Yes (Other)
  Sender: FDA-Public Use
  Company Number: US-ACTELION-A-US2013-92796

PATIENT
  Age: 73 Year
  Sex: Female

DRUGS (30)
  1. TRACLEER [Suspect]
     Indication: PULMONARY ARTERIAL HYPERTENSION
     Dosage: UNK
     Route: 048
  2. ATENOLOL [Concomitant]
     Dosage: 50 MG QD
  3. ADVAIR [Concomitant]
  4. AMITRIPTYLINE HCL [Concomitant]
     Dosage: 10 MG QD
  5. DEXILANT [Concomitant]
     Dosage: 60 MG QD
  6. ENABLEX [Concomitant]
     Dosage: 7.5 MG
  7. HYDROMORPHONE [Concomitant]
     Dosage: 2 MG TABS 1-2 Q6H
  8. LISINOPRIL [Concomitant]
     Dosage: 40 MG QD
  9. METHOCARBAMOL [Concomitant]
     Dosage: 500 MG Q8H
  10. NITROSTAT [Concomitant]
     Dosage: 0.4 MG UNK
  11. PREDNISONE [Concomitant]
     Dosage: 5 MG QD
  12. ROPINIROLE [Concomitant]
     Dosage: 1 MG, 1-2,  HS
  13. SERTRALINE [Concomitant]
     Dosage: 100 MG QD
  14. SINGULAIR [Concomitant]
     Dosage: 10 MG QD
  15. SYNTHROID [Concomitant]
     Dosage: 75 MCG QD
  16. VITAMIN D [Concomitant]
     Dosage: 5000 IU, TABS II, BIW
  17. VITAMIN D [Concomitant]
     Dosage: 1000 IU UNK
  18. CRESTOR [Concomitant]
     Dosage: 20 MG QD
  19. ALBUTEROL [Concomitant]
     Dosage: PRN
  20. ALPRAZOLAM [Concomitant]
     Dosage: 0.25 MG QD
  21. ASPIRIN [Concomitant]
     Dosage: 81 MG QD
  22. FISH OIL [Concomitant]
     Dosage: 1000 MG, TABS II QD
  23. FLEXERIL [Concomitant]
     Dosage: 10 MG BID
  24. JANUVIA [Concomitant]
     Dosage: 100 MG QD
  25. LYRICA [Concomitant]
     Dosage: 25 MG BID
  26. ZOCOR [Concomitant]
     Dosage: 40 MG QD
  27. ZOFRAN [Concomitant]
     Dosage: 4 MG
  28. PLAVIX [Concomitant]
     Dosage: 75 MG QD
  29. RANEXA [Concomitant]
     Dosage: 1000 MG BID
  30. IMDUR [Concomitant]
     Dosage: 60 MG QAM

REACTIONS (9)
  - Vascular graft occlusion [Unknown]
  - Liver function test abnormal [Unknown]
  - Alanine aminotransferase increased [Unknown]
  - Aspartate aminotransferase increased [Unknown]
  - Blood alkaline phosphatase increased [Unknown]
  - Blood bilirubin increased [Unknown]
  - Chest pain [Unknown]
  - Dyspnoea exertional [Unknown]
  - Haemoglobin decreased [Unknown]
